FAERS Safety Report 22075879 (Version 1)
Quarter: 2023Q1

REPORT INFORMATION
  Report Type: Report from Study
  Country: US (occurrence: US)
  Receive Date: 20230308
  Receipt Date: 20230308
  Transmission Date: 20230418
  Serious: No
  Sender: FDA-Public Use
  Company Number: US-INCYTE CORPORATION-2023IN000936

PATIENT

DRUGS (2)
  1. JAKAFI [Suspect]
     Active Substance: RUXOLITINIB
     Indication: Polycythaemia vera
     Dosage: 20 MILLIGRAM, BID
     Route: 048
     Dates: start: 20220701
  2. JAKAFI [Suspect]
     Active Substance: RUXOLITINIB
     Dosage: CUT 20MG JAKAFI TABLETS IN FOURTHS =5 MG AS DOCTOR ORDERED NEW JAKAFI DOSE 15MG TWICE DAILY( PATIENT
     Route: 065
     Dates: start: 202212

REACTIONS (2)
  - Wrong technique in product usage process [Unknown]
  - Haematocrit decreased [Unknown]

NARRATIVE: CASE EVENT DATE: 20221201
